FAERS Safety Report 10420828 (Version 1)
Quarter: 2014Q3

REPORT INFORMATION
  Report Type: Spontaneous
  Country: US (occurrence: None)
  Receive Date: 20140829
  Receipt Date: 20140829
  Transmission Date: 20150326
  Serious: No
  Sender: FDA-Public Use
  Company Number: None

PATIENT
  Age: 70 Year
  Sex: Female

DRUGS (1)
  1. HUMIRA [Suspect]
     Active Substance: ADALIMUMAB
     Indication: RHEUMATOID ARTHRITIS
     Dosage: HUMIRA SYRINGE 40MG EVERY 2 WEEKS  SUBCUTANEOUSLY
     Route: 058
     Dates: start: 20140407

REACTIONS (2)
  - Headache [None]
  - Bone pain [None]

NARRATIVE: CASE EVENT DATE: 20140821
